FAERS Safety Report 8915497 (Version 1)
Quarter: 2012Q4

REPORT INFORMATION
  Report Type: Report from Study
  Country: JP (occurrence: JP)
  Receive Date: 20121119
  Receipt Date: 20121119
  Transmission Date: 20130627
  Serious: Yes (Death, Life-Threatening, Hospitalization)
  Sender: FDA-Public Use
  Company Number: JP-GENZYME-THYM-1003481

PATIENT
  Age: 34 Year
  Sex: Male
  Weight: 80 kg

DRUGS (9)
  1. THYMOGLOBULIN [Suspect]
     Indication: ACUTE GRAFT VERSUS HOST DISEASE
     Dosage: 100 mg, qd
     Route: 065
     Dates: start: 20120719, end: 20120724
  2. METHYLPREDNISOLONE SODIUM SUCCINATE [Suspect]
     Indication: PREMEDICATION
     Dosage: UNK
     Route: 065
     Dates: start: 20120719, end: 20120724
  3. CHLORPHENIRAMINE MALEATE [Concomitant]
     Indication: PREMEDICATION
     Dosage: UNK
     Route: 065
     Dates: start: 20120719, end: 20120724
  4. ACETAMINOPHEN [Concomitant]
     Indication: PREMEDICATION
     Dosage: UNK
     Route: 065
     Dates: start: 20120719, end: 20120724
  5. FLUCONAZOLE [Concomitant]
     Indication: ANTIFUNGAL PROPHYLAXIS
     Dosage: UNK
     Route: 065
     Dates: start: 20120614, end: 20120705
  6. CIPROFLOXACIN HYDROCHLORIDE [Concomitant]
     Indication: ANTIBIOTIC PROPHYLAXIS
     Dosage: UNK
     Route: 065
     Dates: start: 20120614, end: 20120701
  7. FOSFLUCONAZOLE [Concomitant]
     Indication: ANTIFUNGAL PROPHYLAXIS
     Dosage: UNK
     Route: 065
     Dates: start: 20120706, end: 20120817
  8. RED BLOOD CELLS, CONCENTRATED [Concomitant]
     Indication: CHRONIC MYELOID LEUKAEMIA
     Dosage: UNK
     Route: 065
     Dates: start: 20120628, end: 20120817
  9. PLATELETS, HUMAN BLOOD [Concomitant]
     Indication: CHRONIC MYELOID LEUKAEMIA
     Dosage: UNK
     Route: 065
     Dates: start: 20120629, end: 20120817

REACTIONS (4)
  - Acute graft versus host disease [Fatal]
  - Cytomegalovirus enterocolitis [Fatal]
  - Staphylococcal sepsis [Fatal]
  - Epstein-Barr virus infection [Recovered/Resolved]
